FAERS Safety Report 6667289-X (Version None)
Quarter: 2010Q2

REPORT INFORMATION
  Report Type: 
  Country: None (occurrence: None)
  Receive Date: 20100401
  Receipt Date: 20100401
  Transmission Date: 20101027
  Serious: No
  Sender: FDA-Public Use
  Company Number: None

PATIENT
  Age: 35 Year
  Weight: 77.1115 kg

DRUGS (1)
  1. MOXIFLOXACIN HCL [Suspect]
     Indication: CHRONIC SINUSITIS
     Dosage: 400MG  1 PO
     Route: 048
     Dates: start: 20100319, end: 20100323

REACTIONS (3)
  - GAIT DISTURBANCE [None]
  - JOINT STIFFNESS [None]
  - TENDON DISORDER [None]
